FAERS Safety Report 4962965-9 (Version None)
Quarter: 2006Q2

REPORT INFORMATION
  Report Type: 
  Country: None (occurrence: None)
  Receive Date: 20060405
  Receipt Date: 20060328
  Transmission Date: 20061013
  Serious: Yes (Death, Hospitalization)
  Sender: FDA-Public Use
  Company Number: US-JNJFOC-20060307315

PATIENT
  Sex: Female

DRUGS (7)
  1. EXTRA STRENGTH TYLENOL [Suspect]
  2. EXTRA STRENGTH TYLENOL [Suspect]
     Indication: VIRAL INFECTION
  3. PREDNISONE [Concomitant]
     Indication: POLYMYALGIA RHEUMATICA
  4. LIPITOR [Concomitant]
  5. POTASSIUM [Concomitant]
  6. THYROID TAB [Concomitant]
     Indication: THYROID DISORDER
  7. BLOOD PRESSURE MEDICATION [Concomitant]

REACTIONS (2)
  - MYOCARDIAL INFARCTION [None]
  - PALPITATIONS [None]
